FAERS Safety Report 23312636 (Version 1)
Quarter: 2023Q4

REPORT INFORMATION
  Report Type: Spontaneous
  Country: US (occurrence: US)
  Receive Date: 20231219
  Receipt Date: 20231219
  Transmission Date: 20240110
  Serious: No
  Sender: FDA-Public Use
  Company Number: US-ELI_LILLY_AND_COMPANY-US202312008660

PATIENT
  Age: 76 Year
  Sex: Male

DRUGS (5)
  1. TALTZ [Suspect]
     Active Substance: IXEKIZUMAB
     Indication: Psoriatic arthropathy
     Dosage: 80 MG, OTHER(EVERY 4 WEEKS)
     Route: 058
  2. COVID-19 VACCINE [Concomitant]
     Indication: Immunisation
     Dosage: UNK UNK, UNKNOWN
  3. COVID-19 VACCINE [Concomitant]
     Dosage: UNK UNK, UNKNOWN
  4. COVID-19 VACCINE [Concomitant]
     Dosage: UNK UNK, OTHER (BOOSTER)
  5. COVID-19 VACCINE [Concomitant]
     Dosage: UNK UNK, OTHER (BOOSTER)

REACTIONS (1)
  - COVID-19 [Recovered/Resolved]

NARRATIVE: CASE EVENT DATE: 20231209
